FAERS Safety Report 14522009 (Version 1)
Quarter: 2018Q1

REPORT INFORMATION
  Report Type: Spontaneous
  Country: US (occurrence: US)
  Receive Date: 20180212
  Receipt Date: 20180212
  Transmission Date: 20180509
  Serious: No
  Sender: FDA-Public Use
  Company Number: US-G+W LABS-GW2017US000188

PATIENT

DRUGS (2)
  1. CLOBETASOL PROPIONATE. [Suspect]
     Active Substance: CLOBETASOL PROPIONATE
     Indication: LICHEN PLANUS
     Dosage: 0.05 %, QD
     Route: 061
     Dates: start: 201701, end: 201706
  2. CLOBETASOL PROPIONATE. [Suspect]
     Active Substance: CLOBETASOL PROPIONATE
     Indication: ALOPECIA

REACTIONS (4)
  - Intentional product use issue [Recovered/Resolved]
  - Incorrect drug administration duration [Recovered/Resolved]
  - Off label use [Recovered/Resolved]
  - Headache [Recovered/Resolved]

NARRATIVE: CASE EVENT DATE: 2017
